FAERS Safety Report 17362854 (Version 1)
Quarter: 2020Q1

REPORT INFORMATION
  Report Type: Spontaneous
  Country: SE (occurrence: SE)
  Receive Date: 20200203
  Receipt Date: 20200203
  Transmission Date: 20200409
  Serious: Yes (Disabling)
  Sender: FDA-Public Use
  Company Number: SE-MYLANLABS-2020M1011328

PATIENT
  Age: 40 Year
  Sex: Male
  Weight: 97 kg

DRUGS (2)
  1. MODAFINIL ORION [Suspect]
     Active Substance: MODAFINIL
     Indication: FATIGUE
     Dosage: UNK
  2. MODAFINIL. [Suspect]
     Active Substance: MODAFINIL
     Indication: FATIGUE
     Dosage: UNK
     Dates: start: 20070101

REACTIONS (2)
  - Product substitution issue [Not Recovered/Not Resolved]
  - Fatigue [Not Recovered/Not Resolved]

NARRATIVE: CASE EVENT DATE: 2007
